FAERS Safety Report 17856503 (Version 1)
Quarter: 2020Q2

REPORT INFORMATION
  Report Type: Spontaneous
  Country: US (occurrence: US)
  Receive Date: 20200603
  Receipt Date: 20200603
  Transmission Date: 20200714
  Serious: No
  Sender: FDA-Public Use
  Company Number: US-BIOMARINAP-US-2020-130066

PATIENT
  Age: 4 Year
  Sex: Male
  Weight: 20.4 kg

DRUGS (1)
  1. KUVAN [Suspect]
     Active Substance: SAPROPTERIN DIHYDROCHLORIDE
     Indication: PHENYLKETONURIA
     Dosage: 20 MILLIGRAM/KILOGRAM, QD
     Route: 048
     Dates: start: 20200211

REACTIONS (4)
  - Urinary tract infection [Recovered/Resolved]
  - Erythema [Recovered/Resolved]
  - Dysuria [Recovered/Resolved]
  - Amino acid level decreased [Unknown]

NARRATIVE: CASE EVENT DATE: 202003
